FAERS Safety Report 7796124-1 (Version None)
Quarter: 2011Q4

REPORT INFORMATION
  Report Type: 
  Country: None (occurrence: None)
  Receive Date: 20111004
  Receipt Date: 20110921
  Transmission Date: 20120403
  Serious: Yes (Other)
  Sender: FDA-Public Use
  Company Number: JP-MYLANLABS-2011S1012600

PATIENT
  Age: 51 Year
  Sex: Female
  Weight: 45.8 kg

DRUGS (10)
  1. POLARAMINE [Concomitant]
     Indication: PREMEDICATION
     Route: 048
     Dates: start: 20110204, end: 20110523
  2. METHYLCOBAL [Concomitant]
     Indication: NEUROPATHY PERIPHERAL
     Route: 048
     Dates: start: 20110513
  3. CARBOPLATIN [Suspect]
     Indication: OVARIAN CANCER
     Route: 041
     Dates: start: 20110204, end: 20110523
  4. DECADRON PHOSPHATE [Concomitant]
     Indication: PREMEDICATION
     Route: 041
     Dates: start: 20110204, end: 20110204
  5. LOXONIN [Concomitant]
     Indication: ANALGESIC THERAPY
     Route: 048
     Dates: start: 20110206
  6. FERROMIA /00023520/ [Concomitant]
     Indication: ANAEMIA
     Route: 048
     Dates: start: 20110318, end: 20110428
  7. TAXOL [Suspect]
     Indication: OVARIAN CANCER
     Route: 041
     Dates: start: 20110204, end: 20110523
  8. GRANISETRON [Concomitant]
     Indication: PREMEDICATION
     Route: 042
     Dates: start: 20110204, end: 20110523
  9. MUCOSTA [Concomitant]
     Indication: PROPHYLAXIS
     Route: 048
     Dates: start: 20110206
  10. FAMOTIDINE [Concomitant]
     Indication: PREMEDICATION
     Route: 041
     Dates: start: 20110204, end: 20110523

REACTIONS (1)
  - INTERSTITIAL LUNG DISEASE [None]
